FAERS Safety Report 6136256-7 (Version None)
Quarter: 2009Q1

REPORT INFORMATION
  Report Type: 
  Country: None (occurrence: None)
  Receive Date: 20090330
  Receipt Date: 20090319
  Transmission Date: 20090719
  Serious: Yes (Hospitalization)
  Sender: FDA-Public Use
  Company Number: US-BIOGENIDEC-2009BI002925

PATIENT
  Age: 46 Year
  Sex: Male

DRUGS (2)
  1. AVONEX [Suspect]
     Indication: MULTIPLE SCLEROSIS
     Route: 030
     Dates: start: 20071207
  2. AVONEX [Suspect]
     Route: 030

REACTIONS (4)
  - DEPRESSION [None]
  - OVERDOSE [None]
  - SCHIZOPHRENIA [None]
  - SUICIDE ATTEMPT [None]
